FAERS Safety Report 12660456 (Version 1)
Quarter: 2016Q3

REPORT INFORMATION
  Report Type: Report from Study
  Country: US (occurrence: US)
  Receive Date: 20160817
  Receipt Date: 20160817
  Transmission Date: 20161109
  Serious: Yes (Hospitalization, Other)
  Sender: FDA-Public Use
  Company Number: US-ASTELLAS-2010001261

PATIENT
  Age: 61 Year
  Sex: Female

DRUGS (3)
  1. ERLOTINIB [Suspect]
     Active Substance: ERLOTINIB
     Indication: COLON CANCER METASTATIC
     Route: 048
     Dates: start: 20100322, end: 20100331
  2. GEMCITABINE [Suspect]
     Active Substance: GEMCITABINE\GEMCITABINE HYDROCHLORIDE
     Indication: COLON CANCER METASTATIC
     Dosage: 1000 MG/M2, ONCE WEEKLY, ON DAYS 1,8,15,22,29,36 AND 43
     Route: 042
     Dates: start: 20100322, end: 20100331
  3. VISMODEGIB [Suspect]
     Active Substance: VISMODEGIB
     Indication: COLON CANCER METASTATIC
     Route: 048
     Dates: start: 20100322, end: 20100331

REACTIONS (7)
  - Thrombocytopenia [Recovering/Resolving]
  - Cystitis [Unknown]
  - White blood cell count decreased [Unknown]
  - Nausea [Unknown]
  - Anaemia [Unknown]
  - Neutrophil count decreased [Unknown]
  - Platelet count decreased [Unknown]

NARRATIVE: CASE EVENT DATE: 20100331
